FAERS Safety Report 6722074-5 (Version None)
Quarter: 2010Q2

REPORT INFORMATION
  Report Type: 
  Country: None (occurrence: None)
  Receive Date: 20100505
  Receipt Date: 20100226
  Transmission Date: 20101027
  Serious: No
  Sender: FDA-Public Use
  Company Number: WAES 1002USA04041

PATIENT

DRUGS (1)
  1. ISENTRESS [Suspect]
     Dosage: PO
     Route: 048

REACTIONS (1)
  - DIARRHOEA [None]
